FAERS Safety Report 9026858 (Version 1)
Quarter: 2013Q1

REPORT INFORMATION
  Report Type: Spontaneous
  Country: FR (occurrence: FR)
  Receive Date: 20130123
  Receipt Date: 20130123
  Transmission Date: 20140127
  Serious: Yes (Death)
  Sender: FDA-Public Use
  Company Number: FR-PFIZER INC-2013025287

PATIENT
  Age: 86 Year
  Sex: Female

DRUGS (11)
  1. ALDACTONE [Suspect]
     Dosage: 25 MG, 1X/DAY
     Route: 048
  2. LASILIX [Suspect]
     Dosage: 40 MG, 1X/DAY
     Route: 048
  3. HEMIGOXIN [Concomitant]
     Dosage: 1 DOSAGE FORM (DF), 1X/DAY
  4. KALEORID [Concomitant]
     Dosage: 3 DOSAGE FORMS (DF), 1X/DAY
  5. TRANSIPEG [Concomitant]
     Dosage: 3 DOSAGE FORMS (DF), 1X/DAY
  6. XANAX [Concomitant]
     Dosage: 1.5 DOSAGE FORM (DF), 1X/DAY
  7. PREVISCAN [Concomitant]
     Dosage: 1/4 DOSAGE FORM (DF), ALTERNATE DAY
     Dates: end: 20121102
  8. INEXIUM [Concomitant]
     Dosage: 1 DOSAGE FORM (DF), 1X/DAY
  9. LEVOTHYROX [Concomitant]
     Dosage: 62.5 UG (HALF OF 25 MCG PLUS ONE 50 MCG TABLETS), 1X/DAY
  10. STABLON [Concomitant]
     Dosage: 3 DOSAGE FORMS (DF), 1X/DAY
  11. OROCAL D3 [Concomitant]
     Dosage: 2 DOSAGE FORMS (DF), 1X/DAY

REACTIONS (2)
  - Dehydration [Fatal]
  - Overdose [Fatal]
